FAERS Safety Report 6258105-9 (Version None)
Quarter: 2009Q3

REPORT INFORMATION
  Report Type: 
  Country: None (occurrence: None)
  Receive Date: 20090707
  Receipt Date: 20090629
  Transmission Date: 20100115
  Serious: Yes (Hospitalization)
  Sender: FDA-Public Use
  Company Number: US-ELI_LILLY_AND_COMPANY-US200906001152

PATIENT
  Age: 65 Year
  Sex: Female
  Weight: 83.9 kg

DRUGS (15)
  1. ALIMTA [Suspect]
     Indication: LUNG SQUAMOUS CELL CARCINOMA STAGE UNSPECIFIED
     Dosage: 935 MG, OTHER
     Dates: start: 20090109, end: 20090227
  2. CARBOPLATIN [Concomitant]
     Indication: LUNG SQUAMOUS CELL CARCINOMA STAGE UNSPECIFIED
     Dosage: 500 MG, UNK
     Dates: start: 20090109, end: 20090227
  3. VITAMIN B-12 [Concomitant]
     Dosage: 1000 UG, UNK
     Dates: start: 20090109
  4. FOLIC ACID [Concomitant]
     Dosage: 1 MG, DAILY (1/D)
     Dates: start: 20090109
  5. CORTICOSTEROIDS [Concomitant]
     Dosage: 10 MG, UNK
     Route: 042
     Dates: start: 20090109, end: 20090109
  6. CORTICOSTEROIDS [Concomitant]
     Dosage: 4 MG, OTHER
     Route: 048
     Dates: start: 20090111, end: 20090302
  7. IMDUR [Concomitant]
     Dosage: 60 MG, DAILY (1/D)
  8. ZYPREXA [Concomitant]
     Dosage: 10 MG, EACH EVENING
  9. PROTONIX [Concomitant]
     Dosage: 40 MG, EACH MORNING
  10. POTASSIUM CHLORIDE [Concomitant]
     Dosage: 25 MEQ, DAILY (1/D)
  11. ZOCOR [Concomitant]
     Dosage: 80 MG, EACH EVENING
  12. COUMADIN [Concomitant]
  13. ATIVAN [Concomitant]
     Dosage: 1 MG, AS NEEDED
  14. ZOFRAN [Concomitant]
     Dosage: 8 MG, AS NEEDED
  15. VICODIN [Concomitant]
     Dosage: UNK, AS NEEDED
     Route: 048

REACTIONS (1)
  - MALIGNANT NEOPLASM PROGRESSION [None]
